FAERS Safety Report 9638229 (Version 3)
Quarter: 2013Q4

REPORT INFORMATION
  Report Type: Spontaneous
  Country: US (occurrence: US)
  Receive Date: 20131022
  Receipt Date: 20131122
  Transmission Date: 20140711
  Serious: No
  Sender: FDA-Public Use
  Company Number: US-PFIZER INC-2013300089

PATIENT
  Age: 65 Year
  Sex: Female

DRUGS (1)
  1. XALKORI [Suspect]
     Indication: LUNG NEOPLASM MALIGNANT
     Dosage: 250 MG, 1 CAPSULE EVERY 12 HOURS
     Route: 048
     Dates: start: 20130801

REACTIONS (13)
  - Feeling hot [Unknown]
  - Nausea [Unknown]
  - Abdominal discomfort [Unknown]
  - Hypoaesthesia [Unknown]
  - Neuralgia [Unknown]
  - Blood glucose increased [Unknown]
  - Hypertension [Unknown]
  - Arthralgia [Unknown]
  - Musculoskeletal pain [Unknown]
  - Constipation [Unknown]
  - Diarrhoea [Unknown]
  - Flatulence [Unknown]
  - Decreased appetite [Unknown]
